FAERS Safety Report 7051326-7 (Version None)
Quarter: 2010Q4

REPORT INFORMATION
  Report Type: 
  Country: None (occurrence: None)
  Receive Date: 20101012
  Receipt Date: 20100929
  Transmission Date: 20110411
  Serious: Yes (Other)
  Sender: FDA-Public Use
  Company Number: 018705

PATIENT
  Sex: Male
  Weight: 37 kg

DRUGS (11)
  1. LACOSAMIDE [Suspect]
     Indication: CONVULSION
     Dosage: (100 MG BID TWO 50 MG BID TOTALING 200 MG ORAL)
     Route: 048
     Dates: start: 20100501
  2. DEPAKOTE [Concomitant]
  3. TRILEPTAL [Concomitant]
  4. ZOMIG [Concomitant]
  5. MAXALT /01406501/ [Concomitant]
  6. ZOFRAN [Concomitant]
  7. CLONIDINE [Concomitant]
  8. XOPENEX [Concomitant]
  9. SINGULAIR [Concomitant]
  10. PREVACID [Concomitant]
  11. ADVAIR DISKUS 100/50 [Concomitant]

REACTIONS (5)
  - GRAND MAL CONVULSION [None]
  - HYPOAESTHESIA [None]
  - MUSCLE SPASMS [None]
  - PARTIAL SEIZURES [None]
  - TREMOR [None]
